FAERS Safety Report 18712391 (Version 1)
Quarter: 2021Q1

REPORT INFORMATION
  Report Type: Spontaneous
  Country: US (occurrence: US)
  Receive Date: 20210107
  Receipt Date: 20210107
  Transmission Date: 20210419
  Serious: Yes (Hospitalization)
  Sender: FDA-Public Use
  Company Number: None

PATIENT
  Age: 80 Year
  Sex: Male
  Weight: 112.05 kg

DRUGS (11)
  1. FINASTERIDE. [Concomitant]
     Active Substance: FINASTERIDE
     Dates: start: 20200516
  2. APIXABAN [Concomitant]
     Active Substance: APIXABAN
     Dates: start: 20201217
  3. TAMSULOSIN ER [Concomitant]
     Dates: start: 20200903
  4. VITAMIN A,C,E, ZINC, COPPER [Concomitant]
     Dates: start: 20200518
  5. ACETAMINOPHEN. [Concomitant]
     Active Substance: ACETAMINOPHEN
     Dates: start: 20200120
  6. LOSARTAN. [Concomitant]
     Active Substance: LOSARTAN
     Dates: start: 20201217
  7. DOFETILIDE. [Concomitant]
     Active Substance: DOFETILIDE
     Dates: start: 20201204
  8. BAMLANIVIMAB. [Suspect]
     Active Substance: BAMLANIVIMAB
     Indication: COVID-19
     Dosage: ?          OTHER FREQUENCY:ONCE;?
     Route: 042
     Dates: start: 20210106, end: 20210106
  9. MELATONIN [Concomitant]
     Active Substance: MELATONIN
     Dates: start: 20200518
  10. HYDRALAZINE [Concomitant]
     Active Substance: HYDRALAZINE HYDROCHLORIDE
  11. OMEPRAZOLE. [Concomitant]
     Active Substance: OMEPRAZOLE
     Dates: start: 20200518

REACTIONS (7)
  - Dizziness [None]
  - Dysstasia [None]
  - Blood pressure increased [None]
  - Asthenia [None]
  - Dyspnoea [None]
  - Fatigue [None]
  - Hypertension [None]

NARRATIVE: CASE EVENT DATE: 20210106
